FAERS Safety Report 4353751-1 (Version None)
Quarter: 2004Q2

REPORT INFORMATION
  Report Type: 
  Country: None (occurrence: None)
  Receive Date: 20040505
  Receipt Date: 20040211
  Transmission Date: 20050107
  Serious: Yes (Life-Threatening)
  Sender: FDA-Public Use
  Company Number: DE-MERCK-0402DEU00108

PATIENT
  Age: 65 Year
  Sex: Male

DRUGS (6)
  1. ASPIRIN [Concomitant]
     Indication: CORONARY ARTERY DISEASE
     Route: 048
     Dates: start: 20020201
  2. ASPIRIN [Concomitant]
     Indication: CORONARY ARTERIAL STENT INSERTION
     Route: 048
     Dates: start: 20020201
  3. BISOPROLOL [Concomitant]
     Indication: CORONARY ARTERY DISEASE
     Route: 065
     Dates: start: 20020201
  4. BISOPROLOL [Concomitant]
     Indication: CORONARY ARTERIAL STENT INSERTION
     Route: 065
     Dates: start: 20020201
  5. ZETIA [Suspect]
     Indication: CORONARY ARTERY DISEASE
     Route: 048
     Dates: start: 20040114, end: 20040124
  6. HYDROCORTISONE [Suspect]
     Indication: ADRENAL INSUFFICIENCY
     Route: 048
     Dates: start: 20030501

REACTIONS (2)
  - ASTHENIA [None]
  - DRUG EFFECT DECREASED [None]
